FAERS Safety Report 10086130 (Version 2)
Quarter: 2014Q2

REPORT INFORMATION
  Report Type: Spontaneous
  Country: IT (occurrence: None)
  Receive Date: 20140416
  Receipt Date: 20140522
  Transmission Date: 20141212
  Serious: Yes (Hospitalization)
  Sender: FDA-Public Use
  Company Number: 2286807

PATIENT
  Age: 72 Year
  Sex: Male
  Weight: 71 kg

DRUGS (5)
  1. OXALIPLATIN [Suspect]
     Indication: ADENOCARCINOMA GASTRIC
     Dosage: 236 MG MILLIGRAM(S), CYCLICAL, INTRAVENOUS
     Route: 041
     Dates: start: 20140401, end: 20140401
  2. EPIRUBICIN [Concomitant]
  3. ALOXI [Concomitant]
  4. SOLDESAM [Concomitant]
  5. RANIDIL [Concomitant]

REACTIONS (3)
  - Stridor [None]
  - Dyspnoea [None]
  - Bronchospasm [None]
